FAERS Safety Report 7177427-0 (Version None)
Quarter: 2010Q4

REPORT INFORMATION
  Report Type: 
  Country: None (occurrence: None)
  Receive Date: 20101123
  Receipt Date: 20101020
  Transmission Date: 20110411
  Serious: No
  Sender: FDA-Public Use
  Company Number: 014666

PATIENT
  Sex: Male

DRUGS (3)
  1. CIMZIA [Suspect]
     Dosage: (SUBCUTANEOUS) (SUBCUTANEOUS)
     Route: 058
     Dates: start: 20100301, end: 20100101
  2. CIMZIA [Suspect]
     Dosage: (SUBCUTANEOUS) (SUBCUTANEOUS)
     Route: 058
     Dates: start: 20100101
  3. METHOTREXATE [Concomitant]

REACTIONS (3)
  - DEVICE DIFFICULT TO USE [None]
  - DRUG INEFFECTIVE [None]
  - FISTULA [None]
